FAERS Safety Report 5031651-1 (Version None)
Quarter: 2006Q2

REPORT INFORMATION
  Report Type: 
  Country: None (occurrence: None)
  Receive Date: 20060616
  Receipt Date: 20060607
  Transmission Date: 20061013
  Serious: Yes (Other)
  Sender: FDA-Public Use
  Company Number: 430027M05USA

PATIENT
  Age: 55 Year
  Sex: Female
  Weight: 81.65 kg

DRUGS (4)
  1. NOVANTRONE [Suspect]
     Indication: MULTIPLE SCLEROSIS
     Dosage: 21 MG/M2, NOT REPORTED; 12 MG/M2, 1 IN 3 MONTHS, INTRAVENOUS (NOT OTHERWISE REPORTED)
     Route: 042
     Dates: start: 20011008, end: 20031001
  2. NOVANTRONE [Suspect]
     Indication: MULTIPLE SCLEROSIS
     Dosage: 21 MG/M2, NOT REPORTED; 12 MG/M2, 1 IN 3 MONTHS, INTRAVENOUS (NOT OTHERWISE REPORTED)
     Route: 042
     Dates: start: 20031001, end: 20050831
  3. NOVANTRONE [Suspect]
     Indication: MULTIPLE SCLEROSIS
     Dosage: 21 MG/M2, NOT REPORTED; 12 MG/M2, 1 IN 3 MONTHS, INTRAVENOUS (NOT OTHERWISE REPORTED)
     Route: 042
     Dates: start: 20051207
  4. ZINECARD [Concomitant]

REACTIONS (1)
  - EJECTION FRACTION DECREASED [None]
